FAERS Safety Report 7878928-X (Version None)
Quarter: 2011Q4

REPORT INFORMATION
  Report Type: 
  Country: None (occurrence: None)
  Receive Date: 20111101
  Receipt Date: 20111018
  Transmission Date: 20120403
  Serious: Yes (Hospitalization)
  Sender: FDA-Public Use
  Company Number: US-BAYER-2011-103113

PATIENT
  Age: 40 Year
  Sex: Female
  Weight: 126.98 kg

DRUGS (13)
  1. YAZ [Suspect]
     Dosage: UNK
     Route: 048
     Dates: start: 20080701, end: 20080801
  2. LOTENSIN [Concomitant]
     Dosage: 20 MG, DAILY
     Route: 048
  3. METFORMIN HCL [Concomitant]
     Dosage: 500 MG, BID
     Route: 048
  4. PROVERA [Concomitant]
  5. ESTROGENIC SUBSTANCE [Concomitant]
  6. ZOLOFT [Concomitant]
     Dosage: 50 DAILY
     Route: 048
  7. BENTYL [Concomitant]
     Dosage: 20, QID
     Route: 048
  8. JANUVIA [Concomitant]
     Dosage: 100 MG, DAILY
     Route: 048
  9. REGLAN [Concomitant]
     Dosage: 5 MG, TID
     Route: 048
  10. LANTUS [Concomitant]
     Dosage: 60 UNITS EVERY HOUR OF SLEEP
     Route: 058
  11. HYDROCHLOROTHIAZIDE [Concomitant]
     Dosage: 12.5 MG, DAILY
     Route: 048
  12. APIDRA [Concomitant]
     Dosage: 30 UNITS BEFORE EVERY MEAL
     Route: 058
  13. PROTONIX [Concomitant]
     Dosage: 40 MG, DAILY
     Route: 048

REACTIONS (4)
  - PULMONARY THROMBOSIS [None]
  - PULMONARY EMBOLISM [None]
  - DEEP VEIN THROMBOSIS [None]
  - THROMBOSIS [None]
